FAERS Safety Report 4659050-2 (Version None)
Quarter: 2005Q2

REPORT INFORMATION
  Report Type: 
  Country: None (occurrence: None)
  Receive Date: 20050509
  Receipt Date: 20050429
  Transmission Date: 20051028
  Serious: Yes (Other)
  Sender: FDA-Public Use
  Company Number: 200510143GDS

PATIENT
  Age: 44 Year
  Sex: Male
  Weight: 114 kg

DRUGS (3)
  1. CIPROFLOXACIN [Suspect]
     Indication: LUNG INFECTION
     Dosage: 500 MG, BID, ORAL
     Route: 048
     Dates: start: 20041226, end: 20050103
  2. DOMINAL [Concomitant]
  3. PENICILLIN [Concomitant]

REACTIONS (7)
  - ANAEMIA [None]
  - ELECTROPHORESIS PROTEIN ABNORMAL [None]
  - GAMMOPATHY [None]
  - HYPOCALCAEMIA [None]
  - LYMPHOCYTE MORPHOLOGY ABNORMAL [None]
  - RED BLOOD CELL SEDIMENTATION RATE INCREASED [None]
  - WHITE BLOOD CELL MORPHOLOGY ABNORMAL [None]
